FAERS Safety Report 9199184 (Version 2)
Quarter: 2013Q2

REPORT INFORMATION
  Report Type: Spontaneous
  Country: NO (occurrence: None)
  Receive Date: 20130326
  Receipt Date: 20130417
  Transmission Date: 20140414
  Serious: Yes (Other)
  Sender: FDA-Public Use
  Company Number: AUR-APL-2013-02549

PATIENT
  Sex: Female

DRUGS (2)
  1. METFORMIN [Suspect]
     Indication: DIABETES MELLITUS
     Dosage: 2000 MG (1000 MG, 2 IN 1 D)
  2. GALVUS [Suspect]
     Indication: DIABETES MELLITUS
     Dates: start: 201203

REACTIONS (5)
  - Diarrhoea [None]
  - Glycosylated haemoglobin increased [None]
  - Drug ineffective [None]
  - Latent autoimmune diabetes in adults [None]
  - Blood glucose increased [None]
